FAERS Safety Report 12726829 (Version 5)
Quarter: 2017Q1

REPORT INFORMATION
  Report Type: Report from Study
  Country: US (occurrence: US)
  Receive Date: 20160908
  Receipt Date: 20170131
  Transmission Date: 20170428
  Serious: Yes (Hospitalization, Other)
  Sender: FDA-Public Use
  Company Number: US-AMGEN-USASL2016117926

PATIENT
  Age: 74 Year
  Sex: Female

DRUGS (2)
  1. ENBREL [Suspect]
     Active Substance: ETANERCEPT
     Indication: PSORIATIC ARTHROPATHY
     Dosage: 50 MG, TWICE WEEKLY
     Route: 065
  2. ENBREL [Suspect]
     Active Substance: ETANERCEPT
     Dosage: UNK
     Route: 065

REACTIONS (12)
  - Colitis ulcerative [Unknown]
  - Chondrolysis [Unknown]
  - Infectious colitis [Unknown]
  - Pain in extremity [Recovering/Resolving]
  - Gastrointestinal haemorrhage [Unknown]
  - Foot deformity [Unknown]
  - Off label use [Unknown]
  - Wrong technique in product usage process [Unknown]
  - Arthralgia [Unknown]
  - Volvulus [Unknown]
  - Pain [Recovering/Resolving]
  - Injection site pain [Unknown]
